FAERS Safety Report 20808140 (Version 1)
Quarter: 2022Q2

REPORT INFORMATION
  Report Type: Spontaneous
  Country: US (occurrence: None)
  Receive Date: 20220509
  Receipt Date: 20220509
  Transmission Date: 20220720
  Serious: Yes (Other)
  Sender: FDA-Public Use
  Company Number: None

PATIENT
  Age: 75 Year
  Sex: Female
  Weight: 52.2 kg

DRUGS (13)
  1. DERMATOOL FUNGAL NAIL SOLUTION [Suspect]
     Active Substance: TOLNAFTATE
     Indication: Onychomycosis
     Dosage: OTHER QUANTITY : 1 BRUSHFULL;?FREQUENCY : TWICE A DAY;?OTHER ROUTE : APPLY AROUND AND OVER NAIL;?
     Route: 050
     Dates: start: 20220502, end: 20220508
  2. ANASTROZOLE [Concomitant]
     Active Substance: ANASTROZOLE
  3. PROLIA [Concomitant]
     Active Substance: DENOSUMAB
  4. VAGIFEM [Concomitant]
  5. SUMATRIPTAN [Concomitant]
     Active Substance: SUMATRIPTAN
  6. Valacyclovir [Concomitant]
  7. Vitamins + Minerals [Concomitant]
  8. ACETAMINOPHEN [Concomitant]
  9. Enteric [Concomitant]
  10. Aller-Flo [Concomitant]
  11. Soothe eye drops 2 gtt QD and PRN eye dryness [Concomitant]
  12. HYDROCORTISONE [Concomitant]
  13. Zyrtec [Concomitant]

REACTIONS (7)
  - Feeling hot [None]
  - Erythema [None]
  - Arthralgia [None]
  - Oedema peripheral [None]
  - Erythema [None]
  - Skin discolouration [None]
  - Pyrexia [None]

NARRATIVE: CASE EVENT DATE: 20220507
